FAERS Safety Report 8175673-0 (Version None)
Quarter: 2012Q1

REPORT INFORMATION
  Report Type: 
  Country: None (occurrence: None)
  Receive Date: 20120301
  Receipt Date: 20120225
  Transmission Date: 20120608
  Serious: No
  Sender: FDA-Public Use
  Company Number: US-BIOGENIDEC-2012BI007114

PATIENT
  Age: 57 Year
  Sex: Female

DRUGS (1)
  1. TYSABRI [Suspect]
     Indication: MULTIPLE SCLEROSIS
     Route: 042
     Dates: start: 20111212

REACTIONS (7)
  - TORTICOLLIS [None]
  - SINUSITIS [None]
  - MUSCLE SPASMS [None]
  - ATAXIA [None]
  - VISUAL IMPAIRMENT [None]
  - NAUSEA [None]
  - HEADACHE [None]
